FAERS Safety Report 14596462 (Version 2)
Quarter: 2018Q4

REPORT INFORMATION
  Report Type: Spontaneous
  Country: JP (occurrence: JP)
  Receive Date: 20180303
  Receipt Date: 20181228
  Transmission Date: 20190204
  Serious: Yes (Death)
  Sender: FDA-Public Use
  Company Number: PHJP2018JP005102

PATIENT
  Age: 70 Year
  Sex: Male

DRUGS (1)
  1. VOTRIENT [Suspect]
     Active Substance: PAZOPANIB HYDROCHLORIDE
     Indication: RENAL CELL CARCINOMA
     Dosage: 400 MG, QD
     Route: 048

REACTIONS (3)
  - Malignant neoplasm progression [Fatal]
  - Renal cell carcinoma [Fatal]
  - Performance status decreased [Fatal]
